FAERS Safety Report 8219996-5 (Version None)
Quarter: 2012Q1

REPORT INFORMATION
  Report Type: 
  Country: None (occurrence: None)
  Receive Date: 20120315
  Receipt Date: 20120305
  Transmission Date: 20120608
  Serious: Yes (Hospitalization, Disabling, Other)
  Sender: FDA-Public Use
  Company Number: 2009AL001704

PATIENT
  Age: 54 Year
  Sex: Female
  Weight: 97.5234 kg

DRUGS (37)
  1. LOVENOX [Concomitant]
  2. ROBITUSSIN AC [Concomitant]
  3. ATORVASTATIN [Concomitant]
  4. SENOKOT [Concomitant]
  5. COUMADIN [Concomitant]
  6. PEPCID [Concomitant]
  7. VASOTEC [Concomitant]
  8. ALBUTEROL [Concomitant]
  9. METAMUCIL-2 [Concomitant]
  10. PERCOCET [Concomitant]
  11. HEPARIN [Concomitant]
  12. ATROVENT [Concomitant]
  13. PROTONIX [Concomitant]
  14. AVELOX [Concomitant]
  15. AZMACORT [Concomitant]
  16. LIPITOR [Concomitant]
  17. DIGOXIN [Suspect]
     Indication: CARDIAC DISORDER
     Dosage: 0.25 MG; QD; PO
     Route: 048
     Dates: start: 20000101, end: 20090101
  18. LISINOPRIL [Concomitant]
  19. ZOCOR [Concomitant]
  20. LIPITOR [Concomitant]
  21. ENALAPRIL [Concomitant]
  22. NORVASC [Concomitant]
  23. ASPIRIN [Concomitant]
  24. NITROGLYCERIN [Concomitant]
  25. VIOXX [Concomitant]
  26. CLINDAMYCIN [Concomitant]
  27. FLEXERIL [Concomitant]
  28. LISINOPRIL [Concomitant]
  29. FUROSEMIDE [Concomitant]
  30. CARVEDILOL [Concomitant]
  31. PREVACID [Concomitant]
  32. NORVASC [Concomitant]
  33. VALIUM [Concomitant]
  34. TYLENOL [Concomitant]
  35. WARFARIN SODIUM [Concomitant]
  36. LASIX [Concomitant]
  37. ZITHROMAX [Concomitant]

REACTIONS (46)
  - CATHETER SITE HAEMATOMA [None]
  - ASTHENIA [None]
  - MUSCLE SPASMS [None]
  - ARTHRALGIA [None]
  - RESPIRATORY RATE INCREASED [None]
  - HYPERAESTHESIA [None]
  - FEMORAL ARTERY OCCLUSION [None]
  - PULMONARY OEDEMA [None]
  - PAIN [None]
  - MYOCARDIAL INFARCTION [None]
  - OROPHARYNGEAL PAIN [None]
  - ABDOMINAL MASS [None]
  - BACK PAIN [None]
  - SYNCOPE [None]
  - AORTIC VALVE SCLEROSIS [None]
  - PULMONARY HYPERTENSION [None]
  - REFUSAL OF TREATMENT BY PATIENT [None]
  - PULMONARY CONGESTION [None]
  - MEDICAL DEVICE COMPLICATION [None]
  - PHARYNGEAL ERYTHEMA [None]
  - PHARYNGEAL OEDEMA [None]
  - ABDOMINAL TENDERNESS [None]
  - DISTURBANCE IN ATTENTION [None]
  - DYSAESTHESIA [None]
  - SEROMA [None]
  - ILIAC ARTERY THROMBOSIS [None]
  - INTERNATIONAL NORMALISED RATIO DECREASED [None]
  - COUGH [None]
  - ACTIVITIES OF DAILY LIVING IMPAIRED [None]
  - PAIN IN EXTREMITY [None]
  - BURSITIS [None]
  - MEMORY IMPAIRMENT [None]
  - BLOOD PRESSURE INCREASED [None]
  - AORTIC VALVE INCOMPETENCE [None]
  - RIGHT ATRIAL DILATATION [None]
  - LEFT VENTRICULAR DYSFUNCTION [None]
  - ILIAC ARTERY OCCLUSION [None]
  - CEREBRAL INFARCTION [None]
  - FALL [None]
  - WHEEZING [None]
  - DILATATION VENTRICULAR [None]
  - TRICUSPID VALVE INCOMPETENCE [None]
  - QRS AXIS ABNORMAL [None]
  - CORONARY ARTERY EMBOLISM [None]
  - BRONCHITIS [None]
  - PULMONARY FIBROSIS [None]
